FAERS Safety Report 6198898-2 (Version None)
Quarter: 2009Q2

REPORT INFORMATION
  Report Type: 
  Country: None (occurrence: None)
  Receive Date: 20090520
  Receipt Date: 20090520
  Transmission Date: 20091009
  Serious: Yes (Disabling)
  Sender: FDA-Public Use
  Company Number: None

PATIENT
  Age: 58 Year
  Sex: Male

DRUGS (1)
  1. PRIMAXIN [Suspect]
     Indication: GANGRENE
     Dosage: 500 MG Q12H IV
     Route: 042
     Dates: start: 20090217, end: 20090223

REACTIONS (1)
  - CONVULSION [None]
